FAERS Safety Report 8288220-X (Version None)
Quarter: 2012Q2

REPORT INFORMATION
  Report Type: 
  Country: None (occurrence: None)
  Receive Date: 20120416
  Receipt Date: 20120409
  Transmission Date: 20120825
  Serious: Yes (Other)
  Sender: FDA-Public Use
  Company Number: US-AMGEN-USASP2012017775

PATIENT
  Age: 20 Year
  Sex: Female

DRUGS (3)
  1. ENBREL [Suspect]
     Dosage: 50 MG, QWK
     Dates: start: 20070101
  2. ENBREL [Suspect]
     Indication: RHEUMATOID ARTHRITIS
     Dosage: 50 MG, QWK
     Route: 058
     Dates: start: 20120301
  3. ENBREL [Suspect]
     Dosage: 25 MG, BID
     Route: 058
     Dates: start: 20070101, end: 20070101

REACTIONS (5)
  - MATERNAL EXPOSURE TIMING UNSPECIFIED [None]
  - INTRAPARTUM HAEMORRHAGE [None]
  - CHRONIC TONSILLITIS [None]
  - BLOOD PRESSURE INCREASED [None]
  - PRE-ECLAMPSIA [None]
